FAERS Safety Report 22014767 (Version 3)
Quarter: 2023Q2

REPORT INFORMATION
  Report Type: Spontaneous
  Country: CA (occurrence: CA)
  Receive Date: 20230221
  Receipt Date: 20230510
  Transmission Date: 20230721
  Serious: Yes (Other)
  Sender: FDA-Public Use
  Company Number: CA-CELLTRION INC.-2022CA010975

PATIENT

DRUGS (2)
  1. INFLIXIMAB [Suspect]
     Active Substance: INFLIXIMAB
     Indication: Colitis ulcerative
     Dosage: Q2WEEKS
     Route: 058
     Dates: start: 20210909, end: 20230328
  2. INFLIXIMAB [Suspect]
     Active Substance: INFLIXIMAB
     Dosage: Q2WEEKS
     Route: 058
     Dates: start: 20230414

REACTIONS (5)
  - Haematochezia [Recovering/Resolving]
  - Colitis [Recovering/Resolving]
  - Injection site mass [Recovered/Resolved]
  - Skin reaction [Not Recovered/Not Resolved]
  - Injection site pain [Unknown]

NARRATIVE: CASE EVENT DATE: 20221212
